FAERS Safety Report 4454464-8 (Version None)
Quarter: 2004Q3

REPORT INFORMATION
  Report Type: 
  Country: None (occurrence: None)
  Receive Date: 20040921
  Receipt Date: 20031125
  Transmission Date: 20050211
  Serious: Yes (Other)
  Sender: FDA-Public Use
  Company Number: 200311396JP

PATIENT
  Age: 55 Year
  Sex: Female
  Weight: 43.4 kg

DRUGS (11)
  1. ARAVA [Suspect]
     Indication: RHEUMATOID ARTHRITIS
     Route: 048
     Dates: start: 20031007, end: 20040830
  2. GASTER [Concomitant]
     Indication: GASTRITIS
     Route: 048
     Dates: start: 20030602
  3. PREDONINE [Concomitant]
     Indication: ARTHRITIS
     Route: 048
     Dates: start: 20030602
  4. MUCOSTA [Concomitant]
     Indication: GASTRITIS
     Route: 048
     Dates: start: 20030602
  5. CLINORIL [Concomitant]
     Indication: INFLAMMATION
     Route: 048
     Dates: start: 20030602
  6. DEPAS [Concomitant]
     Indication: INSOMNIA
     Route: 048
     Dates: start: 20030602
  7. VOLTAREN [Concomitant]
     Indication: INFLAMMATION
     Route: 054
     Dates: start: 20030602
  8. VOLTAREN [Concomitant]
     Indication: PAIN
     Route: 054
     Dates: start: 20030602
  9. RHEUMATREX [Concomitant]
     Indication: RHEUMATOID ARTHRITIS
     Route: 048
     Dates: start: 20030602, end: 20031001
  10. FOLIAMIN [Concomitant]
     Route: 048
     Dates: start: 20030602, end: 20031003
  11. METHOTREXATE [Concomitant]

REACTIONS (8)
  - ALANINE AMINOTRANSFERASE INCREASED [None]
  - ASPARTATE AMINOTRANSFERASE INCREASED [None]
  - BLOOD ALKALINE PHOSPHATASE INCREASED [None]
  - BLOOD BILIRUBIN INCREASED [None]
  - BLOOD LACTATE DEHYDROGENASE INCREASED [None]
  - GAMMA-GLUTAMYLTRANSFERASE INCREASED [None]
  - PRURITUS [None]
  - RASH [None]
